FAERS Safety Report 16284866 (Version 5)
Quarter: 2019Q2

REPORT INFORMATION
  Report Type: Report from Study
  Country: None (occurrence: ES)
  Receive Date: 20190508
  Receipt Date: 20190613
  Transmission Date: 20190711
  Serious: Yes (Hospitalization, Other)
  Sender: FDA-Public Use
  Company Number: ES-ABBVIE-19S-144-2771251-00

PATIENT
  Age: 73 Year
  Sex: Male

DRUGS (3)
  1. DUODOPA [Suspect]
     Active Substance: CARBIDOPA\LEVODOPA
     Indication: PARKINSON^S DISEASE
     Route: 050
     Dates: start: 20170216
  2. SINOGAN [Suspect]
     Active Substance: LEVOMEPROMAZINE
     Indication: AGGRESSION
  3. SINOGAN [Suspect]
     Active Substance: LEVOMEPROMAZINE
     Indication: PSYCHOTIC DISORDER
     Dosage: 15 DROPS IN THE MORNING AND 10 DROPS AT NIGHT
     Route: 048
     Dates: start: 20190426, end: 20190502

REACTIONS (10)
  - Food refusal [Unknown]
  - On and off phenomenon [Recovered/Resolved]
  - Decubitus ulcer [Recovering/Resolving]
  - Contraindicated product administered [Unknown]
  - Refusal of treatment by patient [Unknown]
  - Aggression [Recovered/Resolved]
  - Psychotic disorder [Unknown]
  - Infected skin ulcer [Recovered/Resolved]
  - Freezing phenomenon [Unknown]
  - Drug ineffective [Unknown]

NARRATIVE: CASE EVENT DATE: 2019
